FAERS Safety Report 6943580-4 (Version None)
Quarter: 2010Q3

REPORT INFORMATION
  Report Type: 
  Country: None (occurrence: None)
  Receive Date: 20100826
  Receipt Date: 20100816
  Transmission Date: 20110219
  Serious: Yes (Hospitalization)
  Sender: FDA-Public Use
  Company Number: US-ABBOTT-10P-163-0664622-00

PATIENT
  Sex: Female

DRUGS (2)
  1. HUMIRA [Suspect]
     Indication: CROHN'S DISEASE
     Route: 058
     Dates: start: 20071001, end: 20091001
  2. HUMIRA [Suspect]
     Route: 058
     Dates: start: 20100208, end: 20100401

REACTIONS (2)
  - CEREBRAL HAEMORRHAGE [None]
  - PULMONARY HAEMORRHAGE [None]
